FAERS Safety Report 18999385 (Version 1)
Quarter: 2021Q1

REPORT INFORMATION
  Report Type: Not Available
  Country: US (occurrence: US)
  Receive Date: 20210311
  Receipt Date: 20210311
  Transmission Date: 20210420
  Serious: Yes (Other)
  Sender: FDA-Public Use
  Company Number: US-NEUROCRINE BIOSCIENCES INC.-2021NBI01120

PATIENT
  Age: 75 Year
  Sex: Female

DRUGS (4)
  1. AMANTADINE HCL [Concomitant]
     Active Substance: AMANTADINE HYDROCHLORIDE
  2. ENTACAPONE. [Concomitant]
     Active Substance: ENTACAPONE
  3. CARBIDOPA / LEVODOPA [Concomitant]
     Active Substance: CARBIDOPA\LEVODOPA
  4. ONGENTYS [Suspect]
     Active Substance: OPICAPONE
     Indication: PARKINSON^S DISEASE
     Dosage: EVERY NIGHT AT BEDTIME ON EMPTY STOMACH
     Route: 048

REACTIONS (2)
  - Hallucination [Unknown]
  - Somnolence [Not Recovered/Not Resolved]
